FAERS Safety Report 10540252 (Version 1)
Quarter: 2014Q4

REPORT INFORMATION
  Report Type: Spontaneous
  Country: FR (occurrence: FR)
  Receive Date: 20141024
  Receipt Date: 20141024
  Transmission Date: 20150529
  Serious: Yes (Hospitalization)
  Sender: FDA-Public Use
  Company Number: FR-JNJFOC-20141005496

PATIENT
  Age: 76 Year
  Sex: Female
  Weight: 45 kg

DRUGS (17)
  1. INEXIUM [Concomitant]
     Active Substance: ESOMEPRAZOLE
     Route: 065
  2. DUROGESIC [Suspect]
     Active Substance: FENTANYL
     Indication: PAIN
     Route: 062
     Dates: start: 20140612, end: 20140612
  3. SPAGULAX [Concomitant]
     Active Substance: PLANTAGO OVATA SEED
     Route: 065
  4. LAMALINE [Suspect]
     Active Substance: ACETAMINOPHEN\CAFFEINE\OPIUM
     Indication: BONE PAIN
     Route: 048
     Dates: start: 20140609, end: 20140629
  5. STILNOX [Concomitant]
     Active Substance: ZOLPIDEM TARTRATE
     Route: 065
  6. ACTISKENAN [Suspect]
     Active Substance: MORPHINE SULFATE
     Indication: PAIN
     Route: 048
     Dates: start: 20140613, end: 20140613
  7. KARDEGIC [Concomitant]
     Active Substance: ASPIRIN LYSINE
     Route: 065
  8. LAMALINE [Suspect]
     Active Substance: ACETAMINOPHEN\CAFFEINE\OPIUM
     Indication: RIB FRACTURE
     Route: 048
     Dates: start: 20140609, end: 20140629
  9. CORDARONE [Concomitant]
     Active Substance: AMIODARONE HYDROCHLORIDE
     Route: 065
  10. PRIMPERAN [Concomitant]
     Active Substance: METOCLOPRAMIDE HYDROCHLORIDE
     Route: 065
  11. KAYEXALATE [Concomitant]
     Active Substance: SODIUM POLYSTYRENE SULFONATE
     Route: 065
  12. LYSANXIA [Concomitant]
     Active Substance: PRAZEPAM
     Route: 065
  13. UVEDOSE [Concomitant]
     Active Substance: CHOLECALCIFEROL
     Route: 065
  14. FORLAX [Concomitant]
     Active Substance: POLYETHYLENE GLYCOL 4000
     Route: 065
  15. OROCAL [Concomitant]
     Active Substance: CALCIUM CARBONATE
     Route: 065
  16. PARACETAMOL [Concomitant]
     Active Substance: ACETAMINOPHEN
     Route: 065
  17. LEXOMIL [Concomitant]
     Active Substance: BROMAZEPAM
     Route: 048

REACTIONS (11)
  - Vomiting [Recovered/Resolved]
  - Confusional state [Recovered/Resolved]
  - Accidental overdose [Recovered/Resolved]
  - Speech disorder [Recovered/Resolved]
  - Dyspnoea [Recovered/Resolved]
  - Dysphagia [Recovered/Resolved]
  - Faecaloma [Recovered/Resolved]
  - General physical health deterioration [Recovered/Resolved]
  - Lung disorder [Recovered/Resolved]
  - Disorientation [Recovered/Resolved]
  - Disturbance in attention [Recovered/Resolved]

NARRATIVE: CASE EVENT DATE: 20140614
